FAERS Safety Report 8257756-X (Version None)
Quarter: 2012Q2

REPORT INFORMATION
  Report Type: 
  Country: None (occurrence: None)
  Receive Date: 20120404
  Receipt Date: 20120327
  Transmission Date: 20120825
  Serious: Yes (Hospitalization)
  Sender: FDA-Public Use
  Company Number: US-BIOGENIDEC-2011BI031943

PATIENT
  Age: 44 Year
  Sex: Male

DRUGS (2)
  1. TYSABRI [Suspect]
     Indication: MULTIPLE SCLEROSIS
     Route: 042
     Dates: start: 20070308, end: 20070524
  2. TYSABRI [Suspect]
     Route: 042
     Dates: start: 20080514

REACTIONS (7)
  - DEEP VEIN THROMBOSIS [None]
  - HYPOAESTHESIA [None]
  - MULTIPLE SCLEROSIS RELAPSE [None]
  - HEADACHE [None]
  - FALL [None]
  - INFLUENZA [None]
  - VEIN DISORDER [None]
